FAERS Safety Report 9922412 (Version 1)
Quarter: 2014Q1

REPORT INFORMATION
  Report Type: Spontaneous
  Country: US (occurrence: None)
  Receive Date: 20140224
  Receipt Date: 20140224
  Transmission Date: 20141002
  Serious: Yes (Life-Threatening, Disabling, Other)
  Sender: FDA-Public Use
  Company Number: None

PATIENT
  Sex: Male

DRUGS (1)
  1. DEPO TESTOSTERONE [Suspect]
     Indication: HYPOGONADISM
     Route: 030
     Dates: start: 200009

REACTIONS (10)
  - Hypertension [None]
  - Myocardial infarction [None]
  - Cardiac failure congestive [None]
  - Congestive cardiomyopathy [None]
  - Obesity [None]
  - Fluid retention [None]
  - Oedema [None]
  - Sleep apnoea syndrome [None]
  - Pneumonia [None]
  - Respiratory disorder [None]
